FAERS Safety Report 24251644 (Version 1)
Quarter: 2024Q3

REPORT INFORMATION
  Report Type: Report from Study
  Country: US (occurrence: US)
  Receive Date: 20240827
  Receipt Date: 20240827
  Transmission Date: 20241016
  Serious: Yes (Other)
  Sender: NOVARTIS
  Company Number: US-002147023-NVSC2024US169945

PATIENT
  Sex: Female

DRUGS (2)
  1. KISQALI [Suspect]
     Active Substance: RIBOCICLIB
     Indication: Product used for unknown indication
     Dosage: 600 MG, QD
     Route: 048
     Dates: start: 202303
  2. FEMARA [Suspect]
     Active Substance: LETROZOLE
     Indication: Product used for unknown indication
     Dosage: 2.5 MG, QD
     Route: 048

REACTIONS (9)
  - Atrial fibrillation [Unknown]
  - Chronic kidney disease [Unknown]
  - Anaemia [Unknown]
  - Pruritus [Unknown]
  - Sciatica [Unknown]
  - Haemorrhage [Unknown]
  - Stress [Unknown]
  - Hot flush [Unknown]
  - Pain [Unknown]
